FAERS Safety Report 7681829-3 (Version None)
Quarter: 2011Q3

REPORT INFORMATION
  Report Type: 
  Country: None (occurrence: None)
  Receive Date: 20110813
  Receipt Date: 20110810
  Transmission Date: 20111222
  Serious: Yes (Life-Threatening, Hospitalization)
  Sender: FDA-Public Use
  Company Number: GB-AMGEN-GBRCT2011032274

PATIENT
  Age: 64 Year
  Sex: Male
  Weight: 66.5 kg

DRUGS (2)
  1. IRINOTECAN HCL [Concomitant]
     Dosage: 480 MG, UNK
     Route: 042
     Dates: start: 20100409
  2. PANITUMUMAB [Suspect]
     Indication: COLORECTAL CANCER
     Dosage: 300 MG, UNK
     Route: 042
     Dates: start: 20100409

REACTIONS (1)
  - VENTRICULAR TACHYCARDIA [None]
